FAERS Safety Report 5612541-X (Version None)
Quarter: 2008Q1

REPORT INFORMATION
  Report Type: 
  Country: None (occurrence: None)
  Receive Date: 20080204
  Receipt Date: 20080109
  Transmission Date: 20080703
  Serious: No
  Sender: FDA-Public Use
  Company Number: AU-ASTRAZENECA-2008AP00696

PATIENT
  Sex: Female

DRUGS (3)
  1. SEROQUEL [Suspect]
     Route: 048
  2. EFFEXOR [Concomitant]
     Indication: DEPRESSION
  3. EFFEXOR [Concomitant]
     Indication: SUICIDAL IDEATION

REACTIONS (1)
  - NEUTROPENIA [None]
